FAERS Safety Report 11852847 (Version 1)
Quarter: 2015Q4

REPORT INFORMATION
  Report Type: Other
  Country: ES (occurrence: ES)
  Receive Date: 20151218
  Receipt Date: 20151218
  Transmission Date: 20160305
  Serious: Yes (Other)
  Sender: FDA-Public Use
  Company Number: ES-MEDAC PHARMA, INC.-1045666

PATIENT
  Age: 74 Year
  Sex: Female

DRUGS (19)
  1. ACENOCOUMAROL [Suspect]
     Active Substance: ACENOCOUMAROL
  2. BISOPROLOL FUMARATE. [Suspect]
     Active Substance: BISOPROLOL FUMARATE
  3. CLORAZEPATE DIPOTASSIUM. [Suspect]
     Active Substance: CLORAZEPATE DIPOTASSIUM
  4. ENOXAPARIN SODIUM. [Suspect]
     Active Substance: ENOXAPARIN SODIUM
  5. METHOTREXATE [Suspect]
     Active Substance: METHOTREXATE
  6. CLOBETASOL PROPIONATE. [Suspect]
     Active Substance: CLOBETASOL PROPIONATE
     Route: 061
  7. HYDROCHLOROTHIAZIDE. [Suspect]
     Active Substance: HYDROCHLOROTHIAZIDE
  8. OMEPRAZOLE. [Suspect]
     Active Substance: OMEPRAZOLE
  9. METHYLPREDNISOLONE ACETATE. [Suspect]
     Active Substance: METHYLPREDNISOLONE ACETATE
     Route: 061
  10. DILTIAZEM HYDROCHLORIDE. [Suspect]
     Active Substance: DILTIAZEM HYDROCHLORIDE
  11. PREDNISONE. [Suspect]
     Active Substance: PREDNISONE
  12. HYDROCORTISONE. [Suspect]
     Active Substance: HYDROCORTISONE
     Route: 061
  13. FUROSEMIDE. [Suspect]
     Active Substance: FUROSEMIDE
  14. FOLIC ACID. [Concomitant]
     Active Substance: FOLIC ACID
  15. METHOTREXATE (METHOTREXATE SODIUM) [Suspect]
     Active Substance: METHOTREXATE SODIUM
  16. RAMIPRIL. [Suspect]
     Active Substance: RAMIPRIL
  17. DIGOXIN. [Suspect]
     Active Substance: DIGOXIN
  18. ALPRAZOLAM. [Suspect]
     Active Substance: ALPRAZOLAM
  19. INSULIN [Concomitant]
     Active Substance: INSULIN NOS

REACTIONS (10)
  - Erythema [Recovering/Resolving]
  - Condition aggravated [Recovering/Resolving]
  - Stupor [Unknown]
  - Toxicity to various agents [Recovering/Resolving]
  - Drug interaction [Unknown]
  - Erythrodermic psoriasis [Recovering/Resolving]
  - Euphoric mood [Unknown]
  - Somnolence [Unknown]
  - Disorientation [Unknown]
  - Transaminases increased [Recovering/Resolving]
